FAERS Safety Report 8739853 (Version 2)
Quarter: 2013Q4

REPORT INFORMATION
  Report Type: Spontaneous
  Country: US (occurrence: US)
  Receive Date: 20120823
  Receipt Date: 20131101
  Transmission Date: 20140711
  Serious: No
  Sender: FDA-Public Use
  Company Number: US-009507513-1208USA000350

PATIENT
  Age: 24 Year
  Sex: Female

DRUGS (3)
  1. PEGINTRON [Suspect]
     Dosage: 150 MICROGRAM, QW
     Route: 058
     Dates: start: 201207
  2. RIBAPAK [Suspect]
  3. RIBASPHERE [Suspect]

REACTIONS (2)
  - Pyrexia [Unknown]
  - Nausea [Unknown]
